FAERS Safety Report 18941308 (Version 1)
Quarter: 2021Q1

REPORT INFORMATION
  Report Type: Spontaneous
  Country: GB (occurrence: GB)
  Receive Date: 20210225
  Receipt Date: 20210225
  Transmission Date: 20210420
  Serious: Yes (Other)
  Sender: FDA-Public Use
  Company Number: GB-TEVA-2021-GB-1880977

PATIENT
  Age: 29 Year
  Sex: Male
  Weight: 83.91 kg

DRUGS (2)
  1. OFLOXACIN. [Suspect]
     Active Substance: OFLOXACIN
     Indication: PROSTATITIS
  2. OFLOXACIN. [Suspect]
     Active Substance: OFLOXACIN
     Indication: ILL-DEFINED DISORDER
     Dosage: 400 MILLIGRAM DAILY; 200 MG
     Route: 048
     Dates: start: 20210203, end: 20210208

REACTIONS (5)
  - Tendon pain [Not Recovered/Not Resolved]
  - Constipation [Recovered/Resolved]
  - Feeling abnormal [Recovering/Resolving]
  - Musculoskeletal discomfort [Not Recovered/Not Resolved]
  - Nausea [Recovered/Resolved]

NARRATIVE: CASE EVENT DATE: 20210204
